FAERS Safety Report 7031506-7 (Version None)
Quarter: 2010Q4

REPORT INFORMATION
  Report Type: 
  Country: None (occurrence: None)
  Receive Date: 20101005
  Receipt Date: 20101005
  Transmission Date: 20110411
  Serious: Yes (Life-Threatening, Hospitalization, Other)
  Sender: FDA-Public Use
  Company Number: None

PATIENT
  Sex: Female
  Weight: 57.6 kg

DRUGS (4)
  1. IRINOTECAN HCL [Suspect]
     Dosage: 210MG/M2 Q 14 DAYS IV
     Route: 042
     Dates: start: 20100921
  2. SYNTHROID [Concomitant]
  3. LEXAPRO [Concomitant]
  4. CRESTOR [Concomitant]

REACTIONS (1)
  - FEBRILE NEUTROPENIA [None]
